FAERS Safety Report 4263729-4 (Version None)
Quarter: 2004Q1

REPORT INFORMATION
  Report Type: 
  Country: None (occurrence: None)
  Receive Date: 20040102
  Receipt Date: 20031219
  Transmission Date: 20041129
  Serious: Yes (Death, Disabling)
  Sender: FDA-Public Use
  Company Number: 2003AP04567

PATIENT
  Age: 60 Year
  Sex: Male

DRUGS (2)
  1. IRESSA [Suspect]
     Indication: LUNG ADENOCARCINOMA
     Dosage: 250 MG DAILY PO
     Route: 048
     Dates: start: 20030906, end: 20030907
  2. IRESSA [Suspect]
     Indication: LUNG ADENOCARCINOMA
     Dosage: 250 MG DAILY PO
     Route: 048
     Dates: start: 20030927

REACTIONS (3)
  - DRUG INEFFECTIVE [None]
  - HYPOXIA [None]
  - INTERSTITIAL LUNG DISEASE [None]
